FAERS Safety Report 5133840-4 (Version None)
Quarter: 2006Q4

REPORT INFORMATION
  Report Type: 
  Country: None (occurrence: None)
  Receive Date: 20061018
  Receipt Date: 20061010
  Transmission Date: 20070319
  Serious: Yes (Other)
  Sender: FDA-Public Use
  Company Number: HQWYE976312OCT06

PATIENT
  Age: 18 Year
  Sex: Female
  Weight: 54.48 kg

DRUGS (1)
  1. ADVIL [Suspect]
     Indication: HEADACHE
     Dosage: 2 TABLETS DAILY AS NEEDED, ORAL
     Route: 048
     Dates: end: 20061006

REACTIONS (5)
  - DYSPNOEA [None]
  - HYPERSENSITIVITY [None]
  - PARAESTHESIA ORAL [None]
  - SWELLING FACE [None]
  - URTICARIA [None]
